FAERS Safety Report 6590885-5 (Version None)
Quarter: 2010Q1

REPORT INFORMATION
  Report Type: 
  Country: None (occurrence: None)
  Receive Date: 20100212
  Receipt Date: 20091112
  Transmission Date: 20100710
  Serious: Yes (Hospitalization)
  Sender: FDA-Public Use
  Company Number: 669599

PATIENT
  Age: 32 Year
  Sex: Female

DRUGS (1)
  1. OSELTAMIVIR PHOSPHATE [Suspect]
     Indication: H1N1 INFLUENZA
     Dosage: 75 MG 2 PER 1 DAY ORAL
     Route: 048

REACTIONS (1)
  - PNEUMONIA BACTERIAL [None]
